FAERS Safety Report 8407024 (Version 4)
Quarter: 2013Q1

REPORT INFORMATION
  Report Type: Spontaneous
  Country: JP (occurrence: JP)
  Receive Date: 20120215
  Receipt Date: 20130130
  Transmission Date: 20140127
  Serious: Yes (Life-Threatening, Hospitalization, Other)
  Sender: FDA-Public Use
  Company Number: JP-PFIZER INC-2012033776

PATIENT
  Age: 74 Year
  Sex: Female
  Weight: 71 kg

DRUGS (4)
  1. SALAZOPYRIN [Suspect]
     Indication: ENTEROCOLITIS
     Dosage: 1000 MG (2 TABLETS OF 500 MG) 4 TIMES DAILY
     Dates: start: 20081009
  2. ACTOS [Concomitant]
     Dosage: 15 MG (HALF TABLET OF 50 MG) ONCE DAILY
     Route: 048
  3. PAMILCON [Concomitant]
     Dosage: 1.25 MG, 2X/DAY
  4. LOCHOL [Concomitant]
     Dosage: 20 MG, 1X/DAY (IN THE EVENING)
     Route: 048

REACTIONS (6)
  - Pancytopenia [Recovered/Resolved]
  - Staphylococcal infection [Recovered/Resolved]
  - Anaemia [Recovered/Resolved]
  - Agranulocytosis [Unknown]
  - Erythropenia [Unknown]
  - Folate deficiency [Unknown]
